FAERS Safety Report 7819160-5 (Version None)
Quarter: 2011Q4

REPORT INFORMATION
  Report Type: 
  Country: None (occurrence: None)
  Receive Date: 20111018
  Receipt Date: 20111007
  Transmission Date: 20120403
  Serious: Yes (Disabling, Other)
  Sender: FDA-Public Use
  Company Number: US-CELGENEUS-163-21880-11042875

PATIENT
  Sex: Male

DRUGS (38)
  1. ASPIR-81 [Concomitant]
     Route: 048
  2. KLOR-CON [Concomitant]
     Dosage: 10
     Route: 048
  3. EPOETIN ALFA [Concomitant]
     Dosage: 40,000 UNITS
     Route: 065
     Dates: start: 20100208, end: 20110616
  4. COMPAZINE [Concomitant]
     Route: 065
     Dates: start: 20110913
  5. METFORMIN HCL [Concomitant]
     Route: 048
     Dates: end: 20110512
  6. REVLIMID [Suspect]
     Indication: MULTIPLE MYELOMA
     Dosage: 25 MILLIGRAM
     Route: 048
     Dates: start: 20110301
  7. DEXAMETHASONE [Concomitant]
     Route: 065
     Dates: start: 20110310, end: 20110606
  8. CLONIDINE HCL [Concomitant]
     Route: 065
     Dates: start: 20110913
  9. LOTRIMIN [Concomitant]
     Route: 048
     Dates: start: 20100506, end: 20110512
  10. LOTRIMIN [Concomitant]
     Route: 065
     Dates: start: 20110913
  11. FERROUS SULFATE TAB [Concomitant]
     Route: 048
  12. GLYBURIDE [Concomitant]
     Route: 048
     Dates: end: 20110606
  13. LASIX [Concomitant]
     Dosage: 30 MILLIGRAM
     Route: 048
  14. MIRALAX [Concomitant]
     Route: 048
  15. COMPAZINE [Concomitant]
     Dosage: 10 MILLIGRAM
     Route: 048
     Dates: start: 20100204, end: 20110512
  16. METFORMIN HCL [Concomitant]
     Route: 065
     Dates: start: 20110913
  17. LOPRESSOR [Concomitant]
     Dosage: 100 MILLIGRAM
     Route: 048
  18. NORVASC [Concomitant]
     Route: 048
  19. PRILOSEC [Concomitant]
     Dosage: 20 MILLIGRAM
     Route: 048
  20. CLONIDINE HCL [Concomitant]
     Route: 048
     Dates: end: 20110606
  21. COUMADIN [Concomitant]
     Dosage: 2.5 MILLIGRAM
     Route: 048
  22. COUMADIN [Concomitant]
     Dosage: 3 MILLIGRAM
     Route: 048
  23. MINOXIDIL [Concomitant]
     Dosage: 10 MILLIGRAM
     Route: 048
  24. CAPSAICIN [Concomitant]
     Route: 061
     Dates: start: 20100512, end: 20110512
  25. ULTRAM [Concomitant]
     Dosage: 50 MILLIGRAM
     Route: 048
     Dates: start: 20100608
  26. OXYGEN [Concomitant]
     Route: 065
     Dates: start: 20110101
  27. GLYBURIDE [Concomitant]
     Dosage: 25 MILLIGRAM
     Route: 048
  28. CAPSAICIN [Concomitant]
     Route: 065
     Dates: start: 20110913
  29. VALTREX [Concomitant]
     Dosage: 1000 MILLIGRAM
     Route: 065
     Dates: start: 20110208, end: 20110512
  30. DEXAMETHASONE [Concomitant]
     Route: 065
     Dates: end: 20110501
  31. ANTIVERT [Concomitant]
     Dosage: 25 MILLIGRAM
     Route: 048
     Dates: start: 20100713
  32. AVAPRO [Concomitant]
     Route: 048
  33. LIDOCAINE HCL VISCOUS [Concomitant]
     Dates: start: 20110602
  34. MAGIC MOUTHWASH [Concomitant]
     Dosage: 1 TEASPOON
     Route: 065
     Dates: start: 20100301
  35. LIDODERM [Concomitant]
     Route: 065
     Dates: start: 20100518
  36. NEURONTIN [Concomitant]
     Dosage: 200 MILLIGRAM
     Route: 048
     Dates: start: 20100915
  37. PHENERGAN HCL [Concomitant]
     Dosage: 25 MILLIGRAM
     Route: 048
     Dates: start: 20100204
  38. EPOETIN ALFA [Concomitant]
     Route: 065
     Dates: start: 20110913

REACTIONS (4)
  - ASTHENIA [None]
  - DEMENTIA [None]
  - DYSPNOEA [None]
  - DECREASED APPETITE [None]
